FAERS Safety Report 21214295 (Version 1)
Quarter: 2022Q3

REPORT INFORMATION
  Report Type: Spontaneous
  Country: US (occurrence: US)
  Receive Date: 20220816
  Receipt Date: 20220816
  Transmission Date: 20221027
  Serious: No
  Sender: FDA-Public Use
  Company Number: US-ALFASIGMA USA, INC.-2022US001047

PATIENT

DRUGS (1)
  1. ZELNORM [Suspect]
     Active Substance: TEGASEROD MALEATE
     Indication: Product used for unknown indication
     Dosage: 6 MG, BID

REACTIONS (2)
  - Weight increased [Unknown]
  - Dyspepsia [Unknown]
